FAERS Safety Report 8181206-5 (Version None)
Quarter: 2012Q1

REPORT INFORMATION
  Report Type: 
  Country: None (occurrence: None)
  Receive Date: 20120302
  Receipt Date: 20120228
  Transmission Date: 20120608
  Serious: Yes (Congenital Anomaly)
  Sender: FDA-Public Use
  Company Number: GB-GLAXOSMITHKLINE-B0784506A

PATIENT
  Sex: Male
  Weight: 0.68 kg

DRUGS (2)
  1. LEVOTHYROXINE SODIUM [Concomitant]
  2. LAMOTRIGINE [Suspect]
     Indication: CONVULSION
     Dosage: 50MG PER DAY
     Route: 064

REACTIONS (3)
  - PREMATURE BABY [None]
  - CARDIAC MURMUR [None]
  - FALLOT'S TETRALOGY [None]
